FAERS Safety Report 8408155-9 (Version None)
Quarter: 2012Q2

REPORT INFORMATION
  Report Type: 
  Country: None (occurrence: None)
  Receive Date: 20120604
  Receipt Date: 20120524
  Transmission Date: 20120825
  Serious: Yes (Hospitalization)
  Sender: FDA-Public Use
  Company Number: CHPA2012US010988

PATIENT
  Age: 80 Year
  Sex: Female

DRUGS (2)
  1. PREVACID 24 HR [Suspect]
     Indication: GASTROOESOPHAGEAL REFLUX DISEASE
     Dosage: 15 MG, QD
     Route: 048
     Dates: start: 20120402, end: 20120524
  2. PROLIA [Concomitant]
     Indication: OSTEOPOROSIS
     Dosage: UNK, TWICE A YEAR

REACTIONS (5)
  - OFF LABEL USE [None]
  - INAPPROPRIATE SCHEDULE OF DRUG ADMINISTRATION [None]
  - INCORRECT DRUG ADMINISTRATION DURATION [None]
  - GASTRIC ULCER HAEMORRHAGE [None]
  - DIARRHOEA [None]
